FAERS Safety Report 15149753 (Version 1)
Quarter: 2018Q3

REPORT INFORMATION
  Report Type: Spontaneous
  Country: US (occurrence: US)
  Receive Date: 20180716
  Receipt Date: 20180716
  Transmission Date: 20181010
  Serious: No
  Sender: FDA-Public Use
  Company Number: US-VANDA PHARMACEUTICALS, INC-2018TASUS002246

PATIENT
  Sex: Male

DRUGS (2)
  1. HETLIOZ [Suspect]
     Active Substance: TASIMELTEON
     Indication: CIRCADIAN RHYTHM SLEEP DISORDER
     Dosage: 20 MG, QHS
     Route: 048
     Dates: start: 20180411
  2. HETLIOZ [Suspect]
     Active Substance: TASIMELTEON
     Dosage: 2 CAPSULES 2 TO 3 DIFFERENT TIMES
     Dates: start: 201804

REACTIONS (3)
  - Intentional overdose [Unknown]
  - Incorrect dose administered [Unknown]
  - Intentional product use issue [Unknown]
